FAERS Safety Report 14780736 (Version 2)
Quarter: 2018Q2

REPORT INFORMATION
  Report Type: Report from Study
  Country: DE (occurrence: DE)
  Receive Date: 20180419
  Receipt Date: 20180426
  Transmission Date: 20180711
  Serious: Yes (Other)
  Sender: FDA-Public Use
  Company Number: DE-PFIZER INC-2018157618

PATIENT
  Age: 45 Year
  Sex: Male

DRUGS (6)
  1. METOPROLOL. [Suspect]
     Active Substance: METOPROLOL
     Dosage: UNK
  2. CITALOPRAM [Suspect]
     Active Substance: CITALOPRAM HYDROBROMIDE
     Dosage: UNK
  3. 3,4-METHYLENEDIOXYPYROVALERONE [Suspect]
     Active Substance: METHYLENEDIOXYPYROVALERONE HYDROCHLORIDE
     Dosage: UNK
  4. LEVOMETHADONE [Suspect]
     Active Substance: LEVOMETHADONE
     Dosage: UNK
  5. MIRTAZAPINE. [Suspect]
     Active Substance: MIRTAZAPINE
     Dosage: UNK
  6. AMLODIPINE BESILATE [Suspect]
     Active Substance: AMLODIPINE BESYLATE
     Dosage: UNK

REACTIONS (4)
  - Mood swings [Unknown]
  - Toxicity to various agents [Unknown]
  - Restlessness [Unknown]
  - Logorrhoea [Unknown]
